FAERS Safety Report 6885404-X (Version None)
Quarter: 2010Q3

REPORT INFORMATION
  Report Type: 
  Country: None (occurrence: None)
  Receive Date: 20100729
  Receipt Date: 20080820
  Transmission Date: 20110219
  Serious: Yes (Other)
  Sender: FDA-Public Use
  Company Number: US-PFIZER INC-2008057336

PATIENT
  Sex: Female
  Weight: 54 kg

DRUGS (2)
  1. CELEBREX [Suspect]
     Indication: ARTHRALGIA
     Route: 048
     Dates: start: 20080101, end: 20080701
  2. ADVIL LIQUI-GELS [Concomitant]

REACTIONS (3)
  - HYPERVENTILATION [None]
  - LIP SWELLING [None]
  - PRURITUS [None]
